FAERS Safety Report 17133856 (Version 1)
Quarter: 2019Q4

REPORT INFORMATION
  Report Type: Spontaneous
  Country: US (occurrence: US)
  Receive Date: 20191210
  Receipt Date: 20191210
  Transmission Date: 20200122
  Serious: No
  Sender: FDA-Public Use
  Company Number: US-UCBSA-2016038429

PATIENT
  Sex: Female

DRUGS (9)
  1. STELARA [Suspect]
     Active Substance: USTEKINUMAB
     Indication: PSORIATIC ARTHROPATHY
  2. HUMIRA [Suspect]
     Active Substance: ADALIMUMAB
     Indication: PSORIATIC ARTHROPATHY
  3. SIMPONI [Suspect]
     Active Substance: GOLIMUMAB
     Indication: PSORIASIS
     Dosage: UNKNOWN DOSE
  4. LEFLUNOMIDE. [Concomitant]
     Active Substance: LEFLUNOMIDE
     Indication: PSORIASIS
     Dosage: UNKNOWN DOSE
  5. HUMIRA [Suspect]
     Active Substance: ADALIMUMAB
     Indication: PSORIASIS
     Dosage: UNKNOWN DOSE
     Route: 058
  6. SIMPONI [Suspect]
     Active Substance: GOLIMUMAB
     Indication: PSORIATIC ARTHROPATHY
  7. CIMZIA [Suspect]
     Active Substance: CERTOLIZUMAB PEGOL
     Indication: PSORIASIS
  8. STELARA [Suspect]
     Active Substance: USTEKINUMAB
     Indication: PSORIASIS
     Dosage: UNKNOWN DOSE
  9. CIMZIA [Suspect]
     Active Substance: CERTOLIZUMAB PEGOL
     Indication: PSORIATIC ARTHROPATHY
     Dosage: UNKNOWN DOSE

REACTIONS (8)
  - Fatigue [Unknown]
  - Nausea [Unknown]
  - Urticaria [Unknown]
  - Hypersensitivity [Unknown]
  - Drug ineffective [Unknown]
  - Arthritis [Unknown]
  - Off label use [Unknown]
  - Weight increased [Unknown]
